FAERS Safety Report 8444060 (Version 7)
Quarter: 2013Q2

REPORT INFORMATION
  Report Type: Spontaneous
  Country: US (occurrence: US)
  Receive Date: 20120306
  Receipt Date: 20130422
  Transmission Date: 20140414
  Serious: Yes (Hospitalization, Other)
  Sender: FDA-Public Use
  Company Number: US-009507513-1203USA00410

PATIENT
  Sex: Female
  Weight: 80 kg

DRUGS (8)
  1. FOSAMAX [Suspect]
     Indication: OSTEOPOROSIS
     Dosage: UNK
     Route: 048
     Dates: start: 2002
  2. FOSAMAX [Suspect]
     Dosage: 70 MG, UNK
     Route: 048
     Dates: start: 20040331, end: 20061116
  3. FOSAMAX [Suspect]
     Indication: OSTEOPOROSIS
     Dosage: 70 MG, QW
     Route: 048
     Dates: start: 20010622, end: 201003
  4. ALENDRONATE SODIUM [Suspect]
     Dosage: 70 MG, UNK
     Route: 048
     Dates: start: 20080626
  5. OMEGA-3 MARINE TRIGLYCERIDES [Concomitant]
     Dosage: 6 DF, QD
     Dates: start: 2002
  6. VITAMINS (UNSPECIFIED) [Concomitant]
     Dosage: 1 DF, QD
     Dates: start: 2002
  7. CALCIUM (UNSPECIFIED) [Concomitant]
     Dosage: 1 DF, QD
     Dates: start: 2002
  8. VITAMIN E [Concomitant]
     Dosage: 1 DF, QD
     Dates: start: 2002

REACTIONS (49)
  - Femur fracture [Recovering/Resolving]
  - Tonsillectomy [Unknown]
  - Appendicectomy [Unknown]
  - Basal cell carcinoma [Unknown]
  - Meniscus injury [Unknown]
  - Meniscus removal [Unknown]
  - Orbitotomy [Unknown]
  - Sensory disturbance [Unknown]
  - Impaired healing [Unknown]
  - Bone density decreased [Unknown]
  - Osteoporosis [Unknown]
  - Fall [Unknown]
  - Urinary tract infection [Unknown]
  - Groin pain [Unknown]
  - Cough [Unknown]
  - Non-alcoholic steatohepatitis [Unknown]
  - Hypertension [Unknown]
  - Hypertriglyceridaemia [Unknown]
  - Pulmonary mass [Unknown]
  - Skin lesion [Unknown]
  - Cataract [Unknown]
  - Dyspnoea [Unknown]
  - Dysaesthesia [Unknown]
  - Macular degeneration [Unknown]
  - Osteoarthritis [Unknown]
  - Dermatitis contact [Unknown]
  - Musculoskeletal stiffness [Unknown]
  - Liver function test abnormal [Unknown]
  - Cough [Not Recovered/Not Resolved]
  - Atrophic vulvovaginitis [Unknown]
  - Chronic sinusitis [Not Recovered/Not Resolved]
  - Spinal compression fracture [Unknown]
  - Aortic dilatation [Unknown]
  - Renal cyst [Unknown]
  - Hepatic cyst [Unknown]
  - Uterine leiomyoma [Unknown]
  - Aspartate aminotransferase increased [Unknown]
  - Wound infection [Unknown]
  - Cough [Unknown]
  - Musculoskeletal pain [Unknown]
  - Pain in extremity [Unknown]
  - Pain in extremity [Unknown]
  - Abdominal distension [Unknown]
  - Abdominal discomfort [Unknown]
  - Pruritus [Unknown]
  - Constipation [Unknown]
  - Arthralgia [Unknown]
  - Gastrooesophageal reflux disease [Unknown]
  - Local swelling [Unknown]
